FAERS Safety Report 9740740 (Version 1)
Quarter: 2013Q4

REPORT INFORMATION
  Report Type: Spontaneous
  Country: US (occurrence: US)
  Receive Date: 20131209
  Receipt Date: 20131209
  Transmission Date: 20140711
  Serious: No
  Sender: FDA-Public Use
  Company Number: US-BIOGENIDEC-2013BI100765

PATIENT
  Age: 50 Year
  Sex: Female

DRUGS (7)
  1. TECFIDERA [Suspect]
     Indication: MULTIPLE SCLEROSIS
     Route: 048
     Dates: start: 20130815, end: 20130829
  2. TECFIDERA [Suspect]
     Indication: MULTIPLE SCLEROSIS
     Route: 048
     Dates: start: 20130830, end: 20130912
  3. TECFIDERA [Suspect]
     Indication: MULTIPLE SCLEROSIS
     Route: 048
     Dates: start: 20130913
  4. HYDROCHLOROTHIAZIDE [Concomitant]
     Indication: PRURITUS
  5. HYDROCHLOROTHIAZIDE [Concomitant]
     Indication: HOT FLUSH
  6. PROVIGIL [Concomitant]
     Route: 048
  7. BENICAR [Concomitant]
     Indication: ESSENTIAL HYPERTENSION
     Route: 048

REACTIONS (3)
  - Hot flush [Unknown]
  - Pruritus [Unknown]
  - Gastrointestinal disorder [Unknown]
